FAERS Safety Report 10396211 (Version 2)
Quarter: 2014Q3

REPORT INFORMATION
  Report Type: Spontaneous
  Country: IT (occurrence: FR)
  Receive Date: 20140820
  Receipt Date: 20140820
  Transmission Date: 20150326
  Serious: Yes (Hospitalization)
  Sender: FDA-Public Use
  Company Number: FR-FRI-1000068811

PATIENT
  Age: 28 Year
  Sex: Female

DRUGS (9)
  1. VELBE [Suspect]
     Active Substance: VINBLASTINE SULFATE
     Indication: HODGKIN^S DISEASE
     Dosage: 10 MG
     Route: 042
     Dates: start: 20131025, end: 20140607
  2. INEXIUM [Suspect]
     Active Substance: ESOMEPRAZOLE
     Dosage: 40 MG
     Route: 048
  3. NEBIVOLOL [Suspect]
     Active Substance: NEBIVOLOL
     Dosage: 5 MG
     Route: 048
     Dates: start: 201402, end: 20140611
  4. BLEOMYCIN [Suspect]
     Active Substance: BLEOMYCIN SULFATE
     Indication: HODGKIN^S DISEASE
     Dosage: 9 MG
     Route: 042
     Dates: start: 20131025, end: 20140607
  5. CLIMASTON [Concomitant]
     Active Substance: ESTRADIOL\PROGESTERONE
     Dosage: 10 MG
     Route: 048
  6. DACARBAZINE. [Suspect]
     Active Substance: DACARBAZINE
     Indication: HODGKIN^S DISEASE
     Dosage: 200 MG
     Route: 042
     Dates: start: 20131025, end: 20140607
  7. DOXORUBICIN [Suspect]
     Active Substance: DOXORUBICIN
     Indication: HODGKIN^S DISEASE
     Dosage: 41.5 MG
     Route: 042
     Dates: start: 20131025, end: 20140607
  8. METHYLPREDNISOLONE [Suspect]
     Active Substance: METHYLPREDNISOLONE
     Indication: HODGKIN^S DISEASE
     Dosage: 200 MG
     Route: 042
     Dates: start: 20131108, end: 20140607
  9. VFEND [Suspect]
     Active Substance: VORICONAZOLE
     Dosage: 400 MG
     Route: 048
     Dates: start: 201404

REACTIONS (2)
  - Extremity necrosis [Not Recovered/Not Resolved]
  - Raynaud^s phenomenon [Not Recovered/Not Resolved]

NARRATIVE: CASE EVENT DATE: 201405
